FAERS Safety Report 8579817-8 (Version None)
Quarter: 2012Q3

REPORT INFORMATION
  Report Type: 
  Country: None (occurrence: None)
  Receive Date: 20120808
  Receipt Date: 20120510
  Transmission Date: 20120928
  Serious: No
  Sender: FDA-Public Use
  Company Number: US-MUTUAL PHARMACEUTICAL COMPANY, INC.-DXCY20120004

PATIENT
  Sex: Female
  Weight: 49.032 kg

DRUGS (1)
  1. DOXYCYCLINE HYCLATE [Suspect]
     Indication: ACNE
     Route: 048
     Dates: start: 20120420, end: 20120429

REACTIONS (3)
  - OESOPHAGEAL ULCER [None]
  - OROPHARYNGEAL PAIN [None]
  - DYSPHAGIA [None]
